FAERS Safety Report 6297664-7 (Version None)
Quarter: 2009Q3

REPORT INFORMATION
  Report Type: 
  Country: None (occurrence: None)
  Receive Date: 20090805
  Receipt Date: 20090728
  Transmission Date: 20100115
  Serious: Yes (Other)
  Sender: FDA-Public Use
  Company Number: BR-ASTRAZENECA-2009UW21512

PATIENT
  Age: 84 Year
  Sex: Female

DRUGS (4)
  1. SYMBICORT [Suspect]
     Indication: BRONCHITIS
     Dosage: 160/4.5 UG BID
     Route: 055
     Dates: end: 20090301
  2. SYMBICORT [Suspect]
     Dosage: 320/9 UG DAILY
     Route: 055
  3. LOSARTANA [Concomitant]
     Indication: HYPERTENSION
     Route: 048
  4. SINVASTATIN [Concomitant]
     Indication: BLOOD TRIGLYCERIDES INCREASED
     Route: 048

REACTIONS (3)
  - CHEST X-RAY ABNORMAL [None]
  - CHOLELITHIASIS [None]
  - X-RAY THERAPY TO LUNG [None]
